FAERS Safety Report 10765282 (Version 2)
Quarter: 2015Q1

REPORT INFORMATION
  Report Type: Report from Study
  Country: DE (occurrence: DE)
  Receive Date: 20150205
  Receipt Date: 20150206
  Transmission Date: 20150721
  Serious: Yes (Hospitalization)
  Sender: FDA-Public Use
  Company Number: DE-ROCHE-1531854

PATIENT
  Age: 72 Year
  Sex: Male

DRUGS (3)
  1. ROACTEMRA [Suspect]
     Active Substance: TOCILIZUMAB
     Indication: RHEUMATOID ARTHRITIS
     Route: 058
     Dates: start: 20150105, end: 20150126
  2. CORTISONE [Concomitant]
     Active Substance: CORTISONE\HYDROCORTISONE
     Indication: RHEUMATOID ARTHRITIS
     Route: 065
  3. MARCUMAR [Concomitant]
     Active Substance: PHENPROCOUMON

REACTIONS (1)
  - Diverticular perforation [Unknown]

NARRATIVE: CASE EVENT DATE: 20150127
